FAERS Safety Report 26148618 (Version 1)
Quarter: 2025Q4

REPORT INFORMATION
  Report Type: Spontaneous
  Country: EU (occurrence: EU)
  Receive Date: 20251212
  Receipt Date: 20251212
  Transmission Date: 20260117
  Serious: Yes (Other)
  Sender: AUROBINDO
  Company Number: EU-AEMPS-1783581

PATIENT
  Age: 61 Year
  Sex: Male
  Weight: 57 kg

DRUGS (11)
  1. LEFLUNOMIDE [Suspect]
     Active Substance: LEFLUNOMIDE
     Indication: Rheumatoid arthritis
     Dosage: 20 MILLIGRAM, ONCE A DAY
     Dates: start: 20250814
  2. CONDROSAN 400 mg CAPSULAS DURAS, 60 c?psulas [Concomitant]
     Indication: Arthralgia
     Dosage: 800 MILLIGRAM
  3. METFORMINA CINFA 850 mg COMPRIMIDOS RECUBIERTOS CON PELICULA EFG, 50 c [Concomitant]
     Indication: Insulin-requiring type 2 diabetes mellitus
     Dosage: 850 MILLIGRAM
  4. GABAPENTIN [Concomitant]
     Active Substance: GABAPENTIN
     Indication: Arthralgia
     Dosage: 300 MILLIGRAM
  5. ADOLONTA 50 mg CAPSULAS DURAS , 60 c?psulas [Concomitant]
     Indication: Insulin-requiring type 2 diabetes mellitus
     Dosage: 50 MILLIGRAM
  6. JANUVIA [Concomitant]
     Active Substance: SITAGLIPTIN PHOSPHATE
     Indication: Insulin-requiring type 2 diabetes mellitus
     Dosage: 50 MILLIGRAM, ONCE A DAY
     Dates: start: 20210226
  7. FERO-GRADUMET 105 mg COMPRIMIDOS DE LIBERACION PROLONGADA., 30 comprim [Concomitant]
     Indication: Iron deficiency anaemia
     Dosage: 105 MILLIGRAM, ONCE A DAY
     Dates: start: 20210310
  8. LANTUS SOLOSTAR 100 UNIDADES/ML SOLUCION INYECTABLE EN PLUMA PRECARGAD [Concomitant]
     Indication: Insulin-requiring type 2 diabetes mellitus
     Dosage: 30 UI, ONCE A DAY
     Dates: start: 20230831
  9. PREDNISONA CINFA 10 mg COMPRIMIDOS, 30 comprimidos [Concomitant]
     Indication: Rheumatoid arthritis
     Dosage: 10 MILLIGRAM
  10. ANTALGIN  550 mg COMPRIMIDOS RECUBIERTOS CON PELICULA , 40 comprimidos [Concomitant]
     Indication: Arthralgia
     Dosage: 550 MILLIGRAM
  11. DEMILOS 600 MG/1000 UI COMPRIMIDOS BUCODISPERSABLES , 30 comprimidos [Concomitant]
     Indication: Rheumatoid arthritis
     Dosage: 1.0 COMP C/24 H

REACTIONS (1)
  - Arthralgia [Not Recovered/Not Resolved]

NARRATIVE: CASE EVENT DATE: 20251125
